FAERS Safety Report 14918886 (Version 1)
Quarter: 2018Q2

REPORT INFORMATION
  Report Type: Spontaneous
  Country: US (occurrence: US)
  Receive Date: 20180521
  Receipt Date: 20180521
  Transmission Date: 20180711
  Serious: No
  Sender: FDA-Public Use
  Company Number: US-BION-006328

PATIENT
  Sex: Female
  Weight: 47.63 kg

DRUGS (4)
  1. FIORICET [Concomitant]
     Active Substance: ACETAMINOPHEN\BUTALBITAL\CAFFEINE
     Indication: MIGRAINE
  2. VENLAFAXINE/VENLAFAXINE HYDROCHLORIDE [Concomitant]
     Indication: MIGRAINE
  3. HYDROCODONE BITARTRATE/PARACETAMOL [Concomitant]
     Indication: ANKLE OPERATION
     Dosage: PILL
  4. MOTRIN IB [Suspect]
     Active Substance: IBUPROFEN
     Indication: INFLAMMATION
     Dosage: STRENGTH: 200 MG.?TWICE, AT 12.30 PM AND 6.30 PM, 1 OF EACH
     Route: 048
     Dates: start: 20170515

REACTIONS (1)
  - Gastrointestinal pain [Unknown]

NARRATIVE: CASE EVENT DATE: 20170515
